FAERS Safety Report 20061851 (Version 2)
Quarter: 2021Q4

REPORT INFORMATION
  Report Type: Spontaneous
  Country: PT (occurrence: PT)
  Receive Date: 20211112
  Receipt Date: 20211116
  Transmission Date: 20220304
  Serious: Yes (Other)
  Sender: FDA-Public Use
  Company Number: PT-BASI-2021000659

PATIENT
  Age: 59 Year
  Sex: Male

DRUGS (14)
  1. LAMOTRIGINE [Suspect]
     Active Substance: LAMOTRIGINE
     Indication: Bipolar disorder
     Dosage: 25 MILLIGRAM, QD
  2. LITHIUM [Suspect]
     Active Substance: LITHIUM
     Indication: Bipolar disorder
     Dosage: UNK
  3. AMLODIPINE [Concomitant]
     Active Substance: AMLODIPINE BESYLATE
     Indication: Hypertension
     Dosage: 5 MILLIGRAM, QD (AMLODIPINE 5 MG ID)
  4. LORAZEPAM [Concomitant]
     Active Substance: LORAZEPAM
     Indication: Bipolar disorder
     Dosage: 2.5 MILLIGRAM, Q3D (LORAZEPAM 2.5 MG 3ID)
  5. LORAZEPAM [Concomitant]
     Active Substance: LORAZEPAM
     Dosage: 7.5 MILLIGRAM, QD (2.5 MG, TID)
  6. FLURAZEPAM [Concomitant]
     Active Substance: FLURAZEPAM HYDROCHLORIDE
     Indication: Bipolar I disorder
     Dosage: 30 MILLIGRAM, QD (FLURAZEPAM 30MG ID)
  7. LISINOPRIL [Concomitant]
     Active Substance: LISINOPRIL
     Indication: Hypertension
     Dosage: 10 MILLIGRAM, QD (LISINOPRIL 10 MG ID)
  8. ARIPIPRAZOLE [Concomitant]
     Active Substance: ARIPIPRAZOLE
     Indication: Bipolar disorder
     Dosage: 10 MILLIGRAM, QD (ARIPIPRAZOLE 10 MG ID)
  9. OLANZAPINE [Concomitant]
     Active Substance: OLANZAPINE
     Indication: Bipolar disorder
     Dosage: 10 MILLIGRAM, QOD (OLANZAPINE 10 MG 2ID)
  10. OLANZAPINE [Concomitant]
     Active Substance: OLANZAPINE
     Dosage: 20 MILLIGRAM, QD (10 MG, BID)
  11. VALPROATE SODIUM [Concomitant]
     Active Substance: VALPROATE SODIUM
     Indication: Bipolar disorder
     Dosage: 1500 MILLIGRAM, QD (SEMISODIUM VALPROATE 1500 MG ID)
  12. DIAZEPAM [Concomitant]
     Active Substance: DIAZEPAM
     Indication: Delusion
     Dosage: 10 MILLIGRAM, QD (5 MG, BID)
  13. FLUOXETINE                         /00724402/ [Concomitant]
     Indication: Delusion
     Dosage: 20 MILLIGRAM, QD
  14. COCAINE [Concomitant]
     Active Substance: COCAINE
     Indication: Product used for unknown indication
     Dosage: UNK

REACTIONS (4)
  - Bipolar I disorder [Unknown]
  - Drug intolerance [Unknown]
  - Muscle twitching [Unknown]
  - Tremor [Unknown]
